FAERS Safety Report 15015064 (Version 1)
Quarter: 2018Q2

REPORT INFORMATION
  Report Type: Spontaneous
  Country: US (occurrence: US)
  Receive Date: 20180615
  Receipt Date: 20180615
  Transmission Date: 20180711
  Serious: Yes (Life-Threatening, Hospitalization, Other)
  Sender: FDA-Public Use
  Company Number: US-009507513-1108USA00421

PATIENT
  Age: 53 Year
  Sex: Female

DRUGS (1)
  1. INVANZ [Suspect]
     Active Substance: ERTAPENEM SODIUM
     Indication: SEPSIS
     Dosage: UNK
     Route: 042

REACTIONS (6)
  - Condition aggravated [Recovered/Resolved]
  - Product label issue [Unknown]
  - Product reconstitution quality issue [Unknown]
  - Sepsis [Recovered/Resolved]
  - Drug dose omission [Unknown]
  - Product preparation error [Unknown]

NARRATIVE: CASE EVENT DATE: 20110710
